FAERS Safety Report 18627233 (Version 1)
Quarter: 2020Q4

REPORT INFORMATION
  Report Type: Spontaneous
  Country: US (occurrence: US)
  Receive Date: 20201216
  Receipt Date: 20201216
  Transmission Date: 20210114
  Serious: No
  Sender: FDA-Public Use
  Company Number: None

PATIENT
  Age: 71 Year
  Sex: Male
  Weight: 84 kg

DRUGS (2)
  1. DAPTOMYCIN (DAPTOMYCIN 500MG/VIL INJ) [Suspect]
     Active Substance: DAPTOMYCIN
     Indication: SEPSIS
     Dosage: ?          OTHER STRENGTH:500MG/VIL;?
     Route: 042
     Dates: start: 20200518, end: 20200529
  2. DAPTOMYCIN (DAPTOMYCIN 500MG/VIL INJ) [Suspect]
     Active Substance: DAPTOMYCIN
     Indication: ARTHRITIS INFECTIVE
     Dosage: ?          OTHER STRENGTH:500MG/VIL;?
     Route: 042
     Dates: start: 20200518, end: 20200529

REACTIONS (4)
  - Blood creatine phosphokinase increased [None]
  - Pain in extremity [None]
  - Back pain [None]
  - Therapy change [None]

NARRATIVE: CASE EVENT DATE: 20200529
